FAERS Safety Report 4301892-7 (Version None)
Quarter: 2004Q1

REPORT INFORMATION
  Report Type: 
  Country: None (occurrence: None)
  Receive Date: 20040219
  Receipt Date: 20040211
  Transmission Date: 20041129
  Serious: Yes (Hospitalization)
  Sender: FDA-Public Use
  Company Number: TPA2004A00173

PATIENT
  Age: 33 Year
  Sex: Female

DRUGS (3)
  1. ACTOS [Suspect]
     Indication: DIABETES MELLITUS NON-INSULIN-DEPENDENT
     Dosage: 30 MG, QHS, PER ORAL
     Route: 048
     Dates: start: 20030601, end: 20040111
  2. ASPIRIN [Concomitant]
  3. INSULIN [Concomitant]

REACTIONS (4)
  - CHOLECYSTECTOMY [None]
  - DYSPNOEA [None]
  - FATIGUE [None]
  - SWELLING [None]
